FAERS Safety Report 4778227-9 (Version None)
Quarter: 2005Q3

REPORT INFORMATION
  Report Type: 
  Country: None (occurrence: None)
  Receive Date: 20050926
  Receipt Date: 20030425
  Transmission Date: 20060218
  Serious: Yes (Other)
  Sender: FDA-Public Use
  Company Number: US-BRISTOL-MYERS SQUIBB COMPANY-12258802

PATIENT
  Age: 45 Year
  Sex: Female

DRUGS (8)
  1. STADOL [Suspect]
     Indication: HEADACHE
     Route: 045
     Dates: start: 19981120, end: 19990401
  2. STADOL [Suspect]
     Indication: BREAST PAIN
     Route: 045
     Dates: start: 19981120, end: 19990401
  3. STADOL [Suspect]
     Indication: MIGRAINE
     Route: 030
     Dates: start: 19990601
  4. NEURONTIN [Concomitant]
  5. LORAZEPAM [Concomitant]
  6. OXYCODONE HCL + ACETAMINOPHEN [Concomitant]
  7. HYDROCODONE [Concomitant]
  8. PHENERGAN [Concomitant]
     Indication: MIGRAINE
     Route: 030
     Dates: start: 20011101

REACTIONS (1)
  - DEPENDENCE [None]
